FAERS Safety Report 13986724 (Version 2)
Quarter: 2018Q3

REPORT INFORMATION
  Report Type: Spontaneous
  Country: US (occurrence: US)
  Receive Date: 20170919
  Receipt Date: 20180830
  Transmission Date: 20181010
  Serious: Yes (Hospitalization)
  Sender: FDA-Public Use
  Company Number: US-ASTRAZENECA-2017SE94294

PATIENT
  Age: 536 Month
  Sex: Male
  Weight: 100.2 kg

DRUGS (10)
  1. CORTICOSTEROID NOS [Concomitant]
     Active Substance: CORTICOSTEROID NOS
     Indication: BACK PAIN
     Dosage: UNKNOWN
     Route: 024
  2. LEVOTHYROXINE. [Concomitant]
     Active Substance: LEVOTHYROXINE
     Indication: THYROID DISORDER
     Route: 048
     Dates: start: 2012
  3. TUDORZA PRESSAIR [Suspect]
     Active Substance: ACLIDINIUM BROMIDE
     Indication: EMPHYSEMA
     Dosage: 400 UG,1 PUFF TWICE DAILY
     Route: 055
     Dates: start: 2015
  4. SYMBICORT [Suspect]
     Active Substance: BUDESONIDE\FORMOTEROL FUMARATE DIHYDRATE
     Indication: CHRONIC OBSTRUCTIVE PULMONARY DISEASE
     Dosage: 160/4.5 MCG, TWO PUFFS TWICE DAILY
     Route: 055
     Dates: start: 2012
  5. METHOCARBAMOL. [Concomitant]
     Active Substance: METHOCARBAMOL
     Indication: BACK PAIN
     Route: 048
     Dates: start: 201602
  6. PROAIR RESCUE INHALER [Concomitant]
     Indication: DYSPNOEA
     Dosage: AS REQUIRED
     Route: 055
  7. LOSARTAN. [Concomitant]
     Active Substance: LOSARTAN
     Indication: HYPERTENSION
     Route: 048
     Dates: start: 2013
  8. TUDORZA PRESSAIR [Suspect]
     Active Substance: ACLIDINIUM BROMIDE
     Indication: CHRONIC OBSTRUCTIVE PULMONARY DISEASE
     Dosage: 400 UG,1 PUFF TWICE DAILY
     Route: 055
     Dates: start: 2015
  9. DUONEBS VIA NEBULIZER [Concomitant]
     Indication: DYSPNOEA
     Dosage: AS REQUIRED
     Route: 055
  10. SYMBICORT [Suspect]
     Active Substance: BUDESONIDE\FORMOTEROL FUMARATE DIHYDRATE
     Indication: ASTHMA
     Dosage: 160/4.5 MCG, TWO PUFFS TWICE DAILY
     Route: 055
     Dates: start: 2012

REACTIONS (12)
  - Dyspnoea [Unknown]
  - Intentional product misuse [Unknown]
  - Nasal septum deviation [Unknown]
  - Asthma [Unknown]
  - Hypoaesthesia [Not Recovered/Not Resolved]
  - Gallbladder disorder [Unknown]
  - Back pain [Not Recovered/Not Resolved]
  - Device malfunction [Unknown]
  - Intervertebral disc disorder [Not Recovered/Not Resolved]
  - Pneumonia [Unknown]
  - Goitre [Unknown]
  - Neck pain [Not Recovered/Not Resolved]

NARRATIVE: CASE EVENT DATE: 201608
